FAERS Safety Report 5004629-1 (Version None)
Quarter: 2006Q2

REPORT INFORMATION
  Report Type: 
  Country: None (occurrence: None)
  Receive Date: 20060512
  Receipt Date: 20060505
  Transmission Date: 20061013
  Serious: No
  Sender: FDA-Public Use
  Company Number: TAP2006Q00827

PATIENT
  Age: 69 Year
  Sex: Male

DRUGS (5)
  1. LUPRON DEPOT-4 [Suspect]
     Indication: PROSTATE CANCER
     Dosage: 30 MG, 1 IN 4 M, INTRAMUSCULAR
     Route: 030
     Dates: start: 20050601
  2. CASODEX [Concomitant]
  3. CALCIUM WITH VITAMIN D (CALCIUM) [Concomitant]
  4. FLOMAX (MORNIFLUMATE) [Concomitant]
  5. ACETAMINOPHEN [Concomitant]

REACTIONS (4)
  - HYPERKERATOSIS [None]
  - OSTEOMYELITIS [None]
  - SELF-MEDICATION [None]
  - WOUND INFECTION [None]
